FAERS Safety Report 17138389 (Version 1)
Quarter: 2019Q4

REPORT INFORMATION
  Report Type: Spontaneous
  Country: US (occurrence: US)
  Receive Date: 20191211
  Receipt Date: 20191211
  Transmission Date: 20200122
  Serious: Yes (Hospitalization, Other)
  Sender: FDA-Public Use
  Company Number: US-MACLEODS PHARMACEUTICALS US LTD-MAC2018019934

PATIENT

DRUGS (5)
  1. VALSARTAN AND HYDROCHLOROTHIAZIDE TABLET [Suspect]
     Active Substance: HYDROCHLOROTHIAZIDE\VALSARTAN
     Dosage: UNK, 160/12.5 MG
     Route: 048
  2. VALSARTAN AND HYDROCHLOROTHIAZIDE TABLET [Suspect]
     Active Substance: HYDROCHLOROTHIAZIDE\VALSARTAN
     Dosage: UNK UNK, QD, 160/12.5 MG 1 TABLET PER DAY
     Route: 048
     Dates: start: 20180627, end: 201807
  3. LOSARTAN. [Concomitant]
     Active Substance: LOSARTAN
     Indication: PRODUCT USED FOR UNKNOWN INDICATION
     Dosage: 50 MILLIGRAM, QD (REPORTED AS 3 TO 5 YEARS AGO RELATIVE TO 24 OCT 2018)
     Route: 065
  4. VALSARTAN AND HYDROCHLOROTHIAZIDE TABLET [Suspect]
     Active Substance: HYDROCHLOROTHIAZIDE\VALSARTAN
     Indication: HYPERTENSION
     Dosage: UNK UNK, QD, 80 MG/12.5 MG 1 TABLET PER DAY
     Route: 048
     Dates: end: 20180726
  5. HUMIRA [Concomitant]
     Active Substance: ADALIMUMAB
     Indication: PRODUCT USED FOR UNKNOWN INDICATION
     Dosage: UNK UNK, QD (REPORTED AS 3 TO 5 YEARS AGO RELATIVE TO 24 OCT 2018)
     Route: 065

REACTIONS (3)
  - Blood pressure increased [Unknown]
  - Precancerous cells present [Unknown]
  - Hysterectomy [Unknown]

NARRATIVE: CASE EVENT DATE: 20180605
